FAERS Safety Report 26002185 (Version 1)
Quarter: 2025Q4

REPORT INFORMATION
  Report Type: Other
  Country: US (occurrence: US)
  Receive Date: 20251105
  Receipt Date: 20251105
  Transmission Date: 20260117
  Serious: Yes (Hospitalization)
  Sender: AIRGAS
  Company Number: US-MLMSERVICE20251022-PI685628-00242-1

PATIENT
  Age: 32 Year
  Sex: Male

DRUGS (2)
  1. NITROUS OXIDE [Suspect]
     Active Substance: NITROUS OXIDE
     Indication: Drug abuse
  2. LISDEXAMFETAMINE [Concomitant]
     Active Substance: LISDEXAMFETAMINE

REACTIONS (5)
  - Cerebral venous sinus thrombosis [Recovering/Resolving]
  - Hyperhomocysteinaemia [Recovering/Resolving]
  - Vitamin B12 deficiency [Recovering/Resolving]
  - Peripheral venous disease [Recovering/Resolving]
  - Cerebral congestion [Recovering/Resolving]
